FAERS Safety Report 4380132-7 (Version None)
Quarter: 2004Q2

REPORT INFORMATION
  Report Type: 
  Country: None (occurrence: None)
  Receive Date: 20040616
  Receipt Date: 20040602
  Transmission Date: 20050107
  Serious: Yes (Death)
  Sender: FDA-Public Use
  Company Number: A-CH2004-05554

PATIENT
  Age: 69 Year
  Sex: Female
  Weight: 48 kg

DRUGS (8)
  1. TRACLEER [Suspect]
     Indication: PULMONARY HYPERTENSION
     Dosage: SEE IMAGE, ORAL
     Route: 048
     Dates: start: 20021008, end: 20021110
  2. TRACLEER [Suspect]
     Indication: PULMONARY HYPERTENSION
     Dosage: SEE IMAGE, ORAL
     Route: 048
     Dates: start: 20021111, end: 20030429
  3. ASS ^STADA^ (ACETYLSALICYLIC ACID) [Concomitant]
  4. PREDNISONE [Concomitant]
  5. IMUREK (AZATHIOPRINE) [Concomitant]
  6. SINTROM [Concomitant]
  7. CORVATON ^BELUPO^ (MOLSIDOMINE) [Concomitant]
  8. PANTOPRAZOLE (PANTOPRAZOLE) [Concomitant]

REACTIONS (1)
  - SUDDEN CARDIAC DEATH [None]
